FAERS Safety Report 5897785-4 (Version None)
Quarter: 2008Q3

REPORT INFORMATION
  Report Type: 
  Country: None (occurrence: None)
  Receive Date: 20080925
  Receipt Date: 20080923
  Transmission Date: 20090109
  Serious: Yes (Life-Threatening, Hospitalization)
  Sender: FDA-Public Use
  Company Number: PHHY2008BE18027

PATIENT
  Age: 41 Year
  Sex: Female

DRUGS (5)
  1. SANDIMMUNE [Suspect]
     Indication: RENAL TRANSPLANT
     Dosage: 180 MG, BID
     Route: 048
  2. SANDIMMUNE [Suspect]
     Dosage: 1/3 X 1/3 (1/9) OF THE DOSE
     Dates: start: 20080814
  3. MEDROL [Concomitant]
  4. ANTIHYPERTENSIVES [Concomitant]
  5. ANTIEPILEPTICS [Concomitant]

REACTIONS (4)
  - ACUTE RESPIRATORY DISTRESS SYNDROME [None]
  - COLITIS ISCHAEMIC [None]
  - ENDOTRACHEAL INTUBATION [None]
  - SYSTEMIC CANDIDA [None]
